FAERS Safety Report 12306711 (Version 2)
Quarter: 2017Q2

REPORT INFORMATION
  Report Type: Spontaneous
  Country: US (occurrence: US)
  Receive Date: 20160426
  Receipt Date: 20170426
  Transmission Date: 20170830
  Serious: No
  Sender: FDA-Public Use
  Company Number: US-ALKERMES INC.-ALK-2016-000698

PATIENT
  Age: 51 Year

DRUGS (2)
  1. VIVITROL [Suspect]
     Active Substance: NALTREXONE
     Indication: ALCOHOLISM
     Dosage: 380 MG, Q28D
     Route: 030
     Dates: start: 20150414, end: 201601
  2. VIVITROL [Suspect]
     Active Substance: NALTREXONE
     Dosage: 380 MG, Q28D
     Route: 030
     Dates: start: 201602, end: 201602

REACTIONS (4)
  - Lethargy [Unknown]
  - Loss of libido [Unknown]
  - Tenderness [Unknown]
  - Migraine [Unknown]

NARRATIVE: CASE EVENT DATE: 201602
